FAERS Safety Report 4392382-4 (Version None)
Quarter: 2004Q3

REPORT INFORMATION
  Report Type: 
  Country: None (occurrence: None)
  Receive Date: 20040702
  Receipt Date: 20040220
  Transmission Date: 20050211
  Serious: Yes (Other)
  Sender: FDA-Public Use
  Company Number: 2004UW03070

PATIENT
  Age: 69 Year
  Sex: Male
  Weight: 70.7611 kg

DRUGS (2)
  1. CRESTOR [Suspect]
     Indication: BLOOD CHOLESTEROL INCREASED
     Dosage: 10 MG QOD PO
     Route: 048
     Dates: start: 20040201
  2. NAPROXEN [Concomitant]

REACTIONS (1)
  - DYSPHAGIA [None]
